FAERS Safety Report 9931613 (Version 1)
Quarter: 2014Q1

REPORT INFORMATION
  Report Type: Spontaneous
  Country: GB (occurrence: None)
  Receive Date: 20140224
  Receipt Date: 20140224
  Transmission Date: 20141002
  Serious: Yes (Other)
  Sender: FDA-Public Use
  Company Number: DOXY20140001

PATIENT
  Age: 33 Year
  Sex: Female

DRUGS (1)
  1. DOXYCYCLINE HYCLATE [Suspect]
     Indication: ACNE
     Route: 048

REACTIONS (11)
  - Nausea [None]
  - Headache [None]
  - Disinhibition [None]
  - Affect lability [None]
  - Irritability [None]
  - Anxiety [None]
  - Depressed mood [None]
  - Social avoidant behaviour [None]
  - Indifference [None]
  - Suicidal ideation [None]
  - Obsessive rumination [None]
